FAERS Safety Report 18575086 (Version 2)
Quarter: 2021Q1

REPORT INFORMATION
  Report Type: Spontaneous
  Country: US (occurrence: US)
  Receive Date: 20201203
  Receipt Date: 20210105
  Transmission Date: 20210419
  Serious: Yes (Hospitalization, Other)
  Sender: FDA-Public Use
  Company Number: US-PFIZER INC-2020475305

PATIENT
  Age: 57 Year
  Sex: Female
  Weight: 82.09 kg

DRUGS (1)
  1. PHENYTOIN. [Suspect]
     Active Substance: PHENYTOIN
     Indication: SEIZURE
     Dosage: 400 MG, DAILY [2 IN AM 2 IN PM]

REACTIONS (2)
  - Cerebrovascular accident [Unknown]
  - Seizure [Recovered/Resolved]
